FAERS Safety Report 11069267 (Version 2)
Quarter: 2015Q2

REPORT INFORMATION
  Report Type: Spontaneous
  Country: SE (occurrence: SE)
  Receive Date: 20150427
  Receipt Date: 20150430
  Transmission Date: 20150821
  Serious: Yes (Hospitalization)
  Sender: FDA-Public Use
  Company Number: SE-TEVA-557368ISR

PATIENT
  Age: 87 Year
  Sex: Male

DRUGS (2)
  1. BISOPROLOL 2,5 MG TABLETS [Suspect]
     Active Substance: BISOPROLOL
     Route: 048
  2. AMLODIPINE [Suspect]
     Active Substance: AMLODIPINE BESYLATE
     Route: 048

REACTIONS (2)
  - Nightmare [Recovered/Resolved]
  - Hyperkalaemia [Recovered/Resolved]
